FAERS Safety Report 16623296 (Version 2)
Quarter: 2019Q3

REPORT INFORMATION
  Report Type: Spontaneous
  Country: CA (occurrence: CA)
  Receive Date: 20190724
  Receipt Date: 20190728
  Transmission Date: 20191004
  Serious: Yes (Other)
  Sender: FDA-Public Use
  Company Number: CA-ABBVIE-19K-028-2859890-00

PATIENT
  Age: 31 Year
  Sex: Female

DRUGS (6)
  1. FOLIC ACID. [Concomitant]
     Active Substance: FOLIC ACID
     Indication: PRODUCT USED FOR UNKNOWN INDICATION
  2. VITAMIN D [Concomitant]
     Active Substance: VITAMIN D NOS
     Indication: PRODUCT USED FOR UNKNOWN INDICATION
  3. HUMIRA [Suspect]
     Active Substance: ADALIMUMAB
     Indication: CROHN^S DISEASE
     Route: 058
     Dates: start: 201701
  4. METHOTREXATE. [Suspect]
     Active Substance: METHOTREXATE
     Indication: CROHN^S DISEASE
     Dosage: START DATE: 2017/2018
     Route: 048
  5. VITAMIN B12 [Concomitant]
     Active Substance: CYANOCOBALAMIN
     Indication: PRODUCT USED FOR UNKNOWN INDICATION
  6. CALCIUM CARBONATE. [Concomitant]
     Active Substance: CALCIUM CARBONATE
     Indication: PRODUCT USED FOR UNKNOWN INDICATION

REACTIONS (14)
  - Hiatus hernia [Unknown]
  - Therapeutic product effect incomplete [Unknown]
  - Panic attack [Unknown]
  - Pain [Unknown]
  - Anxiety disorder [Unknown]
  - Asthma [Unknown]
  - Drug level above therapeutic [Unknown]
  - Weight increased [Unknown]
  - Drug intolerance [Unknown]
  - Cholelithiasis [Unknown]
  - Gastrooesophageal reflux disease [Unknown]
  - Therapeutic product effect incomplete [Unknown]
  - Insomnia [Unknown]
  - Obesity [Unknown]

NARRATIVE: CASE EVENT DATE: 2017
